FAERS Safety Report 7231069-7 (Version None)
Quarter: 2011Q1

REPORT INFORMATION
  Report Type: 
  Country: None (occurrence: None)
  Receive Date: 20110107
  Receipt Date: 20101224
  Transmission Date: 20110831
  Serious: Yes (Other)
  Sender: FDA-Public Use
  Company Number: DSJ-2010-22534

PATIENT
  Age: 68 Year
  Sex: Male
  Weight: 51 kg

DRUGS (2)
  1. PLETAAL (CILOSTAZOL) (CILOSTAZOL) [Concomitant]
  2. OLMETEC (OLMESARTAN MEDOXOMIL) (TABLET) (OLMESARTAN MEDOXOMIL) [Suspect]
     Indication: ESSENTIAL HYPERTENSION
     Dosage: 5 MG, PER ORAL
     Route: 048
     Dates: start: 20091217, end: 20100216

REACTIONS (1)
  - BLOOD PRESSURE DECREASED [None]
